FAERS Safety Report 7558952-7 (Version None)
Quarter: 2011Q2

REPORT INFORMATION
  Report Type: 
  Country: None (occurrence: None)
  Receive Date: 20110621
  Receipt Date: 20110613
  Transmission Date: 20111010
  Serious: Yes (Other)
  Sender: FDA-Public Use
  Company Number: JP-ASTELLAS-2011JP003641

PATIENT
  Sex: Male
  Weight: 71 kg

DRUGS (21)
  1. PROGRAF [Suspect]
     Indication: IMMUNOSUPPRESSION
     Dosage: 6 MG, BID
     Route: 048
     Dates: start: 20110504, end: 20110505
  2. PREDNISOLONE [Concomitant]
     Indication: RENAL FAILURE CHRONIC
     Dosage: 30 MG, UID/QD
     Route: 048
     Dates: start: 20110511
  3. DOPAMINE HCL [Concomitant]
     Indication: RENAL FAILURE CHRONIC
     Dosage: 600 MG, UID/QD
     Route: 041
     Dates: start: 20110511
  4. SIMULECT [Concomitant]
     Indication: RENAL FAILURE CHRONIC
     Dosage: 20 MG, UID/QD
     Route: 041
     Dates: start: 20110511, end: 20110515
  5. PROGRAF [Interacting]
     Dosage: UNK
     Route: 048
     Dates: start: 20110506
  6. PROGRAF [Interacting]
     Dosage: 0.5 MG, BID
     Route: 048
     Dates: start: 20110511, end: 20110511
  7. ALLOID G [Concomitant]
     Indication: RENAL FAILURE CHRONIC
     Dosage: 20 ML, QID
     Route: 048
     Dates: start: 20110422
  8. CELLCEPT [Concomitant]
     Indication: RENAL FAILURE CHRONIC
     Dosage: 750 MG, BID
     Route: 048
     Dates: start: 20110413
  9. PROGRAF [Interacting]
     Dosage: 1.25 MG, UID/QD
     Route: 041
     Dates: start: 20110511, end: 20110511
  10. TACROLIMUS [Interacting]
     Indication: IMMUNOSUPPRESSION
     Dosage: 1.5 MG, UID/QD
     Route: 048
     Dates: start: 20110513, end: 20110517
  11. FOSRENOL [Concomitant]
     Indication: RENAL FAILURE CHRONIC
     Dosage: 500 MG, TID
     Route: 048
     Dates: end: 20110510
  12. PROGRAF [Interacting]
     Dosage: 0.4 MG, BID
     Route: 048
     Dates: start: 20110518, end: 20110527
  13. AMIODARONE HCL [Interacting]
     Indication: ARRHYTHMIA
     Dosage: 100 MG, BID
     Route: 048
     Dates: start: 20110201, end: 20110518
  14. HUMULIN R [Concomitant]
     Indication: RENAL FAILURE CHRONIC
     Dosage: 22 IU, UNKNOWN/D
     Route: 041
     Dates: start: 20110512, end: 20110512
  15. VENOGLOBULIN [Concomitant]
     Indication: RENAL FAILURE CHRONIC
     Dosage: 5 G, UID/QD
     Route: 041
     Dates: start: 20110512, end: 20110516
  16. PREDNISOLONE [Concomitant]
     Indication: RENAL FAILURE CHRONIC
     Dosage: 50 MG, UID/QD
     Route: 041
     Dates: start: 20110504, end: 20110517
  17. LANSOPRAZOLE [Concomitant]
     Indication: RENAL FAILURE CHRONIC
     Dosage: 30 MG, BID
     Route: 041
     Dates: start: 20110511, end: 20110513
  18. NESPO [Concomitant]
     Indication: RENAL FAILURE CHRONIC
     Dosage: 120 MG, UID/QD
     Route: 058
     Dates: start: 20110510
  19. PROGRAF [Interacting]
     Dosage: UNK
     Route: 041
     Dates: start: 20110512
  20. RABEPRAZOLE SODIUM [Concomitant]
     Indication: RENAL FAILURE CHRONIC
     Dosage: 10 MG, UID/QD
     Route: 048
     Dates: start: 20110422
  21. FUTHAN [Concomitant]
     Indication: RENAL FAILURE CHRONIC
     Dosage: 100 MG, UNKNOWN/D
     Route: 041
     Dates: start: 20110511, end: 20110519

REACTIONS (3)
  - RENAL IMPAIRMENT [None]
  - DRUG INTERACTION [None]
  - DRUG LEVEL INCREASED [None]
